FAERS Safety Report 6883099-2 (Version None)
Quarter: 2010Q3

REPORT INFORMATION
  Report Type: 
  Country: None (occurrence: None)
  Receive Date: 20100729
  Receipt Date: 20100723
  Transmission Date: 20110219
  Serious: Yes (Other)
  Sender: FDA-Public Use
  Company Number: US-BRISTOL-MYERS SQUIBB COMPANY-15207277

PATIENT
  Age: 58 Year
  Sex: Female

DRUGS (10)
  1. PRAVACHOL [Suspect]
     Indication: HYPERCHOLESTEROLAEMIA
     Dosage: FOR TOTAL 3 WEEKS.
  2. CELEXA [Concomitant]
  3. NEXIUM [Concomitant]
  4. CARDIZEM [Concomitant]
     Dosage: 1 DF=240 XT
  5. VITAMIN D [Concomitant]
  6. POTASSIUM [Concomitant]
  7. CALCIUM SUPPLEMENT [Concomitant]
  8. VITAMIN B-12 [Concomitant]
     Dosage: INJ ONCE A MONTH
  9. XANAX [Concomitant]
     Dosage: TO SLEEP AT NIGHT
  10. AMBIEN [Concomitant]
     Indication: SLEEP DISORDER
     Dosage: TO SLEEP AT NIGHT

REACTIONS (4)
  - ABSCESS ORAL [None]
  - BONE DENSITY DECREASED [None]
  - OSTEOMYELITIS [None]
  - SYNOVIAL CYST [None]
